FAERS Safety Report 12657811 (Version 2)
Quarter: 2016Q3

REPORT INFORMATION
  Report Type: Report from Study
  Country: US (occurrence: US)
  Receive Date: 20160816
  Receipt Date: 20160823
  Transmission Date: 20161109
  Serious: Yes (Hospitalization)
  Sender: FDA-Public Use
  Company Number: US-ACTELION-A-NJ2016-140472

PATIENT
  Age: 69 Year
  Sex: Female

DRUGS (7)
  1. VELETRI [Suspect]
     Active Substance: EPOPROSTENOL
     Dosage: 8 NG/KG, PER MIN
     Route: 042
  2. VELETRI [Suspect]
     Active Substance: EPOPROSTENOL
     Dosage: 10 NG/KG, PER MIN
     Route: 042
     Dates: start: 20160811
  3. VELETRI [Suspect]
     Active Substance: EPOPROSTENOL
     Dosage: UNK
     Route: 042
     Dates: start: 20160725
  4. REVATIO [Concomitant]
     Active Substance: SILDENAFIL CITRATE
  5. VELETRI [Suspect]
     Active Substance: EPOPROSTENOL
     Dosage: 9 NG/KG, PER MIN
     Route: 042
  6. VELETRI [Suspect]
     Active Substance: EPOPROSTENOL
     Indication: PULMONARY HYPERTENSION
     Dosage: 11 NG/KG, PER MIN
     Route: 042
  7. LETAIRIS [Concomitant]
     Active Substance: AMBRISENTAN

REACTIONS (9)
  - Nausea [Unknown]
  - Arthralgia [Unknown]
  - Diarrhoea [Unknown]
  - Eye irritation [Unknown]
  - Pain in extremity [Unknown]
  - Flushing [Unknown]
  - Retching [Unknown]
  - Musculoskeletal pain [Unknown]
  - Headache [Unknown]

NARRATIVE: CASE EVENT DATE: 20160812
